FAERS Safety Report 23865486 (Version 2)
Quarter: 2024Q2

REPORT INFORMATION
  Report Type: Spontaneous
  Country: US (occurrence: US)
  Receive Date: 20240517
  Receipt Date: 20240606
  Transmission Date: 20240716
  Serious: No
  Sender: FDA-Public Use
  Company Number: US-GSKCCFUS-Case-02004541_AE-111275

PATIENT
  Age: 57 Year
  Sex: Female

DRUGS (3)
  1. NUCALA [Suspect]
     Active Substance: MEPOLIZUMAB
     Indication: Product used for unknown indication
     Dosage: 100 MG (CYC)
     Route: 058
  2. NUCALA [Suspect]
     Active Substance: MEPOLIZUMAB
  3. NUCALA [Suspect]
     Active Substance: MEPOLIZUMAB
     Indication: Product used for unknown indication
     Dosage: 100 MG (CYC)
     Route: 058

REACTIONS (11)
  - Injection site pain [Recovered/Resolved]
  - Respiratory tract infection [Recovered/Resolved]
  - Chest discomfort [Recovered/Resolved]
  - Lung disorder [Recovered/Resolved]
  - Condition aggravated [Recovered/Resolved]
  - Disease recurrence [Recovered/Resolved]
  - Headache [Unknown]
  - Disturbance in attention [Unknown]
  - Somnolence [Unknown]
  - Therapy cessation [Unknown]
  - Drug ineffective [Unknown]

NARRATIVE: CASE EVENT DATE: 20221001
